FAERS Safety Report 6812711-9 (Version None)
Quarter: 2010Q3

REPORT INFORMATION
  Report Type: 
  Country: None (occurrence: None)
  Receive Date: 20100701
  Receipt Date: 20100625
  Transmission Date: 20110219
  Serious: Yes (Other)
  Sender: FDA-Public Use
  Company Number: A0845054D

PATIENT
  Sex: Male
  Weight: 63 kg

DRUGS (3)
  1. LAPATINIB [Suspect]
     Route: 048
     Dates: start: 20091029
  2. CISPLATIN [Suspect]
     Route: 042
     Dates: start: 20091103
  3. RADIOTHERAPY [Suspect]
     Route: 061
     Dates: start: 20091102

REACTIONS (1)
  - LYMPHOPENIA [None]
